FAERS Safety Report 4927979-3 (Version None)
Quarter: 2006Q1

REPORT INFORMATION
  Report Type: 
  Country: None (occurrence: None)
  Receive Date: 20060223
  Receipt Date: 20060207
  Transmission Date: 20060701
  Serious: Yes (Death)
  Sender: FDA-Public Use
  Company Number: S06-CAN-00782-01

PATIENT
  Age: 78 Year
  Sex: Male

DRUGS (1)
  1. CELEXA [Suspect]
     Dosage: 60 MG QD PO
     Route: 048

REACTIONS (1)
  - OVERDOSE [None]
